FAERS Safety Report 18903710 (Version 1)
Quarter: 2021Q1

REPORT INFORMATION
  Report Type: Spontaneous
  Country: US (occurrence: US)
  Receive Date: 20210216
  Receipt Date: 20210216
  Transmission Date: 20210420
  Serious: Yes (Other)
  Sender: FDA-Public Use
  Company Number: None

PATIENT
  Age: 57 Year
  Sex: Female

DRUGS (1)
  1. XELJANZ [Suspect]
     Active Substance: TOFACITINIB CITRATE
     Indication: RHEUMATOID ARTHRITIS
     Route: 048
     Dates: start: 20200708, end: 20210204

REACTIONS (5)
  - Oral mucosal erythema [None]
  - Therapy change [None]
  - Arthralgia [None]
  - Rash [None]
  - Oral discomfort [None]

NARRATIVE: CASE EVENT DATE: 20210204
